FAERS Safety Report 10616528 (Version 2)
Quarter: 2015Q2

REPORT INFORMATION
  Report Type: Spontaneous
  Country: FR (occurrence: FR)
  Receive Date: 20141201
  Receipt Date: 20150521
  Transmission Date: 20150821
  Serious: No
  Sender: FDA-Public Use
  Company Number: FR-009507513-1411FRA013570

PATIENT
  Age: 33 Year
  Sex: Female

DRUGS (3)
  1. SYNAREL [Suspect]
     Active Substance: NAFARELIN ACETATE
     Indication: IMMUNE TOLERANCE INDUCTION
     Dosage: 2 PUFFS, QD
     Route: 045
     Dates: start: 20141031, end: 20141123
  2. FOLLITROPIN BETA [Suspect]
     Active Substance: FOLLITROPIN
     Indication: IN VITRO FERTILISATION
     Dosage: 180 IU, QD
     Route: 058
     Dates: start: 20141121, end: 20141123
  3. FOLLITROPIN BETA [Suspect]
     Active Substance: FOLLITROPIN
     Dosage: UNK (FOR FIRST IN VITRO FERTILIZATION)
     Route: 058
     Dates: start: 201409

REACTIONS (1)
  - Urticaria [Recovered/Resolved]

NARRATIVE: CASE EVENT DATE: 20141123
